FAERS Safety Report 9645421 (Version 2)
Quarter: 2013Q4

REPORT INFORMATION
  Report Type: Spontaneous
  Country: TR (occurrence: TR)
  Receive Date: 20131025
  Receipt Date: 20131111
  Transmission Date: 20140711
  Serious: Yes (Hospitalization, Other)
  Sender: FDA-Public Use
  Company Number: TR-TEVA-438791ISR

PATIENT
  Age: 73 Year
  Sex: Female

DRUGS (9)
  1. FLUVOXAMINE [Suspect]
     Indication: BIPOLAR DISORDER
     Route: 065
  2. FLUVOXAMINE [Suspect]
     Indication: DEPRESSION
  3. OLANZAPINE [Suspect]
     Indication: BIPOLAR DISORDER
     Route: 065
  4. OLANZAPINE [Suspect]
     Indication: DEPRESSION
  5. DIAZEPAM [Suspect]
     Indication: MYOCLONIC EPILEPSY
     Route: 065
  6. VALPROIC ACID [Suspect]
     Indication: MYOCLONIC EPILEPSY
     Route: 050
  7. VALPROIC ACID [Suspect]
     Dosage: 2000 MILLIGRAM DAILY;
     Route: 048
  8. LITHIUM [Suspect]
     Indication: BIPOLAR DISORDER
     Route: 065
  9. DONEPEZIL [Concomitant]
     Indication: BIPOLAR DISORDER
     Route: 065

REACTIONS (9)
  - Toxicity to various agents [Recovering/Resolving]
  - Neurotoxicity [Recovering/Resolving]
  - Quadriparesis [Unknown]
  - Urinary tract infection [Unknown]
  - Urinary incontinence [Unknown]
  - Acute prerenal failure [Unknown]
  - Dysarthria [Unknown]
  - Faecal incontinence [Unknown]
  - Ataxia [Unknown]
